FAERS Safety Report 24786267 (Version 1)
Quarter: 2024Q4

REPORT INFORMATION
  Report Type: Spontaneous
  Country: PT (occurrence: PT)
  Receive Date: 20241229
  Receipt Date: 20241229
  Transmission Date: 20250115
  Serious: Yes (Other)
  Sender: STRIDES
  Company Number: PT-STRIDES ARCOLAB LIMITED-2024SP017090

PATIENT
  Age: 54 Year
  Sex: Male

DRUGS (1)
  1. LEVETIRACETAM [Suspect]
     Active Substance: LEVETIRACETAM
     Indication: Epilepsy
     Dosage: 1500 MILLIGRAM, QD
     Route: 065

REACTIONS (1)
  - Drug-induced liver injury [Recovered/Resolved]
